FAERS Safety Report 9992660 (Version 1)
Quarter: 2014Q1

REPORT INFORMATION
  Report Type: Spontaneous
  Country: US (occurrence: US)
  Receive Date: 20140310
  Receipt Date: 20140310
  Transmission Date: 20141002
  Serious: No
  Sender: FDA-Public Use
  Company Number: US-PFIZER INC-2014057600

PATIENT
  Sex: 0

DRUGS (3)
  1. ADVIL ALLERGY SINUS [Suspect]
     Indication: PAIN
     Dosage: UNK
  2. ADVIL ALLERGY SINUS [Suspect]
     Indication: NASAL CONGESTION
  3. ADVIL ALLERGY SINUS [Suspect]
     Indication: SINUS HEADACHE

REACTIONS (1)
  - Drug effect incomplete [Unknown]
